FAERS Safety Report 14395728 (Version 1)
Quarter: 2018Q1

REPORT INFORMATION
  Report Type: Spontaneous
  Country: US (occurrence: US)
  Receive Date: 20180116
  Receipt Date: 20180116
  Transmission Date: 20180509
  Serious: No
  Sender: FDA-Public Use
  Company Number: US-ALLERGAN-1713393US

PATIENT
  Age: 2 Year
  Sex: Male

DRUGS (2)
  1. BOTOX [Suspect]
     Active Substance: ONABOTULINUMTOXINA
     Indication: QUADRIPLEGIA
     Dosage: UNK, SINGLE
     Route: 030
  2. BOTOX [Suspect]
     Active Substance: ONABOTULINUMTOXINA
     Dosage: UNK, SINGLE
     Route: 030

REACTIONS (2)
  - Product preparation error [Unknown]
  - Pyrexia [Not Recovered/Not Resolved]
